FAERS Safety Report 4612587-4 (Version None)
Quarter: 2005Q1

REPORT INFORMATION
  Report Type: 
  Country: None (occurrence: None)
  Receive Date: 20050318
  Receipt Date: 20050304
  Transmission Date: 20050727
  Serious: Yes (Hospitalization)
  Sender: FDA-Public Use
  Company Number: 200511981US

PATIENT
  Sex: Female
  Weight: 114 kg

DRUGS (3)
  1. LOVENOX [Suspect]
     Indication: DEEP VEIN THROMBOSIS
     Route: 058
     Dates: start: 20000101, end: 20000901
  2. SYNTHROID [Concomitant]
     Indication: HYPOTHYROIDISM
  3. PRENATAL VITAMINS [Concomitant]

REACTIONS (5)
  - DRUG EXPOSURE DURING PREGNANCY [None]
  - PREMATURE BABY [None]
  - STILLBIRTH [None]
  - THROMBOSIS [None]
  - UMBILICAL CORD ABNORMALITY [None]
